FAERS Safety Report 16700269 (Version 2)
Quarter: 2019Q3

REPORT INFORMATION
  Report Type: Spontaneous
  Country: FR (occurrence: FR)
  Receive Date: 20190814
  Receipt Date: 20190924
  Transmission Date: 20191004
  Serious: Yes (Death, Other)
  Sender: FDA-Public Use
  Company Number: FR-AMGEN-FRASP2019126797

PATIENT

DRUGS (1)
  1. ROMIPLOSTIM [Suspect]
     Active Substance: ROMIPLOSTIM
     Indication: PRODUCT USED FOR UNKNOWN INDICATION
     Dosage: UNK
     Route: 065

REACTIONS (9)
  - Deep vein thrombosis [Unknown]
  - Death [Fatal]
  - Chronic kidney disease [Unknown]
  - Cerebrovascular accident [Unknown]
  - Drug ineffective for unapproved indication [Unknown]
  - Alloimmunisation [Unknown]
  - Transplant rejection [Unknown]
  - Pulmonary embolism [Unknown]
  - Haemorrhage [Unknown]
